FAERS Safety Report 24583145 (Version 2)
Quarter: 2025Q2

REPORT INFORMATION
  Report Type: Report from Study
  Country: US (occurrence: US)
  Receive Date: 20241106
  Receipt Date: 20250408
  Transmission Date: 20250717
  Serious: No
  Sender: MERCK SHARP AND DOHME
  Company Number: None

PATIENT
  Sex: Male
  Weight: 89.358 kg

DRUGS (39)
  1. WINREVAIR [Suspect]
     Active Substance: SOTATERCEPT-CSRK
     Indication: Pulmonary arterial hypertension
     Dosage: SEE ATTACHMENT
     Route: 058
  2. WINREVAIR [Suspect]
     Active Substance: SOTATERCEPT-CSRK
  3. WINREVAIR [Suspect]
     Active Substance: SOTATERCEPT-CSRK
  4. WINREVAIR [Suspect]
     Active Substance: SOTATERCEPT-CSRK
  5. WINREVAIR [Suspect]
     Active Substance: SOTATERCEPT-CSRK
  6. WINREVAIR [Suspect]
     Active Substance: SOTATERCEPT-CSRK
  7. WINREVAIR [Suspect]
     Active Substance: SOTATERCEPT-CSRK
  8. WINREVAIR [Suspect]
     Active Substance: SOTATERCEPT-CSRK
  9. WINREVAIR [Suspect]
     Active Substance: SOTATERCEPT-CSRK
  10. WINREVAIR [Suspect]
     Active Substance: SOTATERCEPT-CSRK
  11. WINREVAIR [Suspect]
     Active Substance: SOTATERCEPT-CSRK
  12. WINREVAIR [Suspect]
     Active Substance: SOTATERCEPT-CSRK
  13. WINREVAIR [Suspect]
     Active Substance: SOTATERCEPT-CSRK
  14. WINREVAIR [Suspect]
     Active Substance: SOTATERCEPT-CSRK
  15. WINREVAIR [Suspect]
     Active Substance: SOTATERCEPT-CSRK
  16. WINREVAIR [Suspect]
     Active Substance: SOTATERCEPT-CSRK
  17. REMODULIN [Suspect]
     Active Substance: TREPROSTINIL
     Indication: Pulmonary arterial hypertension
     Route: 041
     Dates: start: 20140523
  18. REMODULIN [Suspect]
     Active Substance: TREPROSTINIL
     Indication: Pulmonary arterial hypertension
     Route: 042
     Dates: start: 20210617
  19. VITAMIN B6 [Concomitant]
     Active Substance: PYRIDOXINE HYDROCHLORIDE
  20. VITAMIN B12 [Concomitant]
     Active Substance: CYANOCOBALAMIN
  21. FLOMAX [Concomitant]
     Active Substance: TAMSULOSIN HYDROCHLORIDE
  22. FOLIC ACID [Concomitant]
     Active Substance: FOLIC ACID
  23. TYLENOL EXTRA STRENGTH [Concomitant]
     Active Substance: ACETAMINOPHEN
  24. TRESIBA [Concomitant]
     Active Substance: INSULIN DEGLUDEC
  25. LOVASTATIN [Concomitant]
     Active Substance: LOVASTATIN
  26. CLONAZEPAM [Concomitant]
     Active Substance: CLONAZEPAM
  27. OMEPRAZOLE [Concomitant]
     Active Substance: OMEPRAZOLE
  28. POTASSIUM CHLORIDE [Concomitant]
     Active Substance: POTASSIUM CHLORIDE
  29. FINASTERIDE [Concomitant]
     Active Substance: FINASTERIDE
  30. MELATONIN [Concomitant]
     Active Substance: MELATONIN
  31. METOPROLOL SUCCINATE [Concomitant]
     Active Substance: METOPROLOL SUCCINATE
  32. ASCORBIC ACID [Concomitant]
     Active Substance: ASCORBIC ACID
  33. ZINC [Concomitant]
     Active Substance: ZINC
  34. ADCIRCA [Concomitant]
     Active Substance: TADALAFIL
  35. CIMERLI [Concomitant]
     Active Substance: RANIBIZUMAB-EQRN
  36. MAGNESIUM OXIDE [Concomitant]
     Active Substance: MAGNESIUM OXIDE
  37. VITAMIN D3 [Concomitant]
     Active Substance: CHOLECALCIFEROL
  38. LUMIGAN [Concomitant]
     Active Substance: BIMATOPROST
  39. LASIX [Concomitant]
     Active Substance: FUROSEMIDE

REACTIONS (10)
  - Hypoglycaemia [Unknown]
  - Muscular weakness [Recovered/Resolved]
  - Weight increased [Unknown]
  - Pain in jaw [Recovered/Resolved]
  - Toothache [Recovered/Resolved]
  - Device leakage [Unknown]
  - Product dose omission issue [Unknown]
  - Product preparation issue [Unknown]
  - Syringe issue [Unknown]
  - Device issue [Unknown]

NARRATIVE: CASE EVENT DATE: 20240101
